FAERS Safety Report 5565433-9 (Version None)
Quarter: 2007Q4

REPORT INFORMATION
  Report Type: 
  Country: None (occurrence: None)
  Receive Date: 20071218
  Receipt Date: 20071207
  Transmission Date: 20080405
  Serious: Yes (Other)
  Sender: FDA-Public Use
  Company Number: AR-PFIZER INC-2007102137

PATIENT
  Age: 30 Year
  Sex: Male
  Weight: 85 kg

DRUGS (4)
  1. AZULFIDINE EN-TABS [Suspect]
     Indication: ANKYLOSING SPONDYLITIS
     Route: 048
     Dates: start: 20070310, end: 20070722
  2. MEPREDNISONE [Concomitant]
  3. ACETAMINOPHEN [Concomitant]
  4. DICLOFENAC [Concomitant]

REACTIONS (1)
  - RASH MACULO-PAPULAR [None]
